FAERS Safety Report 23487853 (Version 1)
Quarter: 2024Q1

REPORT INFORMATION
  Report Type: Spontaneous
  Country: US (occurrence: None)
  Receive Date: 20240205
  Receipt Date: 20240205
  Transmission Date: 20240410
  Serious: Yes (Life-Threatening, Hospitalization)
  Sender: FDA-Public Use
  Company Number: None

PATIENT
  Age: 56 Year
  Sex: Female
  Weight: 141 kg

DRUGS (2)
  1. FONDAPARINUX [Suspect]
     Active Substance: FONDAPARINUX
     Indication: Pulmonary embolism
     Dosage: FREQUENCY : DAILY;?
     Route: 058
     Dates: start: 20231209, end: 20231209
  2. FONDAPARINUX [Suspect]
     Active Substance: FONDAPARINUX
     Indication: Deep vein thrombosis

REACTIONS (7)
  - Lethargy [None]
  - Sluggishness [None]
  - Mydriasis [None]
  - Blood glucose increased [None]
  - Subdural haemorrhage [None]
  - Subarachnoid haemorrhage [None]
  - Tumour excision [None]

NARRATIVE: CASE EVENT DATE: 20231209
